FAERS Safety Report 5909839-4 (Version None)
Quarter: 2008Q4

REPORT INFORMATION
  Report Type: 
  Country: None (occurrence: None)
  Receive Date: 20081007
  Receipt Date: 20081001
  Transmission Date: 20090506
  Serious: Yes (Other)
  Sender: FDA-Public Use
  Company Number: US-BRISTOL-MYERS SQUIBB COMPANY-14355762

PATIENT
  Age: 52 Year
  Sex: Male
  Weight: 69 kg

DRUGS (3)
  1. ABILIFY [Suspect]
     Indication: SCHIZOPHRENIA
  2. CLOZARIL [Concomitant]
  3. MULTI-VITAMIN [Concomitant]

REACTIONS (1)
  - THROMBOPHLEBITIS [None]
